FAERS Safety Report 4513364-5 (Version None)
Quarter: 2004Q4

REPORT INFORMATION
  Report Type: 
  Country: None (occurrence: None)
  Receive Date: 20041130
  Receipt Date: 20040822
  Transmission Date: 20050328
  Serious: Yes (Disabling)
  Sender: FDA-Public Use
  Company Number: US-BRISTOL-MYERS SQUIBB COMPANY-12681359

PATIENT
  Age: 54 Year
  Sex: Male

DRUGS (4)
  1. ERBITUX [Suspect]
     Indication: COLORECTAL CANCER METASTATIC
     Dosage: THERAPY DATES 10-JUN, 17-JUN, 08-JUL, 15-JUL (2004), DOSING 400, 250 X 2, 200 (MG/M2)
     Route: 042
     Dates: start: 20040101, end: 20040101
  2. IRINOTECAN HCL [Concomitant]
     Dosage: DATES OF THERAPY 10-JUN, 17-JUN, 08-JUL + 15-JUL (2004)
     Dates: start: 20040101, end: 20040101
  3. ALOXI [Concomitant]
     Dosage: DATES OF THERAPY 10-JUN, 17-JUN, 08-JUL + 15-JUL (2004)
     Dates: start: 20040101, end: 20040101
  4. ATROPINE [Concomitant]
     Dosage: DATES OF THERAPY 10-JUN, 17-JUN, 08-JUL + 15-JUL (2004)
     Dates: start: 20040101, end: 20040101

REACTIONS (2)
  - PULMONARY FIBROSIS [None]
  - RASH [None]
